FAERS Safety Report 6215689-4 (Version None)
Quarter: 2009Q2

REPORT INFORMATION
  Report Type: 
  Country: None (occurrence: None)
  Receive Date: 20090603
  Receipt Date: 20090603
  Transmission Date: 20091009
  Serious: No
  Sender: FDA-Public Use
  Company Number: None

PATIENT

DRUGS (1)
  1. REFRESH CLASSIC LUBRICANT EYE DROPS, ALLERGAN INC. [Suspect]
     Indication: DRY EYE
     Dosage: 1 DROP EACH EYE 4 X DAY, USED DAILY

REACTIONS (1)
  - VISUAL IMPAIRMENT [None]
